FAERS Safety Report 12210443 (Version 1)
Quarter: 2016Q1

REPORT INFORMATION
  Report Type: Spontaneous
  Country: US (occurrence: US)
  Receive Date: 20160325
  Receipt Date: 20160325
  Transmission Date: 20160526
  Serious: No
  Sender: FDA-Public Use
  Company Number: US-BAYER-2016-057498

PATIENT
  Age: 9 Year
  Sex: Male
  Weight: 61.22 kg

DRUGS (2)
  1. ALEVE [Suspect]
     Active Substance: NAPROXEN SODIUM
     Indication: ANALGESIC THERAPY
     Dosage: 4 DF, UNK
     Route: 048
     Dates: start: 20160222, end: 20160222
  2. ALEVE [Suspect]
     Active Substance: NAPROXEN SODIUM
     Indication: ORAL PAIN

REACTIONS (3)
  - Drug ineffective [None]
  - Drug administered to patient of inappropriate age [None]
  - Product use issue [None]

NARRATIVE: CASE EVENT DATE: 20160222
